FAERS Safety Report 6313125-0 (Version None)
Quarter: 2009Q3

REPORT INFORMATION
  Report Type: 
  Country: None (occurrence: None)
  Receive Date: 20090818
  Receipt Date: 20090806
  Transmission Date: 20100115
  Serious: Yes (Death, Life-Threatening)
  Sender: FDA-Public Use
  Company Number: JP-PFIZER INC-2009253593

PATIENT
  Age: 65 Year

DRUGS (13)
  1. SILDENAFIL CITRATE [Suspect]
     Indication: PULMONARY ARTERIAL HYPERTENSION
     Dosage: 20 MG, 3X/DAY
     Route: 048
     Dates: start: 20090515, end: 20090525
  2. BERAPROST SODIUM [Concomitant]
     Route: 048
     Dates: start: 20080301, end: 20090513
  3. FLOLAN [Concomitant]
     Route: 042
     Dates: start: 20090514, end: 20090514
  4. FLUITRAN [Concomitant]
     Route: 048
  5. LASIX [Concomitant]
     Route: 048
  6. DIGOSIN [Concomitant]
     Route: 048
  7. ALDACTONE [Concomitant]
  8. BLOPRESS [Concomitant]
     Route: 048
  9. ALLOPURINOL [Concomitant]
     Route: 048
  10. WARFARIN POTASSIUM [Concomitant]
  11. ZANTAC [Concomitant]
     Route: 048
  12. FERROUS FUMARATE [Concomitant]
     Route: 048
  13. VOGLIBOSE [Concomitant]
     Route: 048

REACTIONS (2)
  - DEATH [None]
  - RENAL FAILURE [None]
